FAERS Safety Report 7437906-5 (Version None)
Quarter: 2011Q2

REPORT INFORMATION
  Report Type: 
  Country: None (occurrence: None)
  Receive Date: 20110426
  Receipt Date: 20110418
  Transmission Date: 20111010
  Serious: Yes (Life-Threatening, Other)
  Sender: FDA-Public Use
  Company Number: B0715078A

PATIENT
  Age: 50 Year
  Sex: Male

DRUGS (1)
  1. ZINACEF [Suspect]
     Indication: PROPHYLAXIS
     Dates: start: 20101220, end: 20101222

REACTIONS (2)
  - ANAPHYLACTIC SHOCK [None]
  - CIRCULATORY COLLAPSE [None]
